FAERS Safety Report 5866515-4 (Version None)
Quarter: 2008Q3

REPORT INFORMATION
  Report Type: 
  Country: None (occurrence: None)
  Receive Date: 20080902
  Receipt Date: 20080902
  Transmission Date: 20090109
  Serious: Yes (Hospitalization)
  Sender: FDA-Public Use
  Company Number: PHEH1997US00252

PATIENT
  Sex: Male
  Weight: 104 kg

DRUGS (13)
  1. SANDIMMUNE [Suspect]
     Route: 048
     Dates: start: 19960712
  2. PREDNISONE TAB [Concomitant]
  3. IMURAN [Concomitant]
  4. PRILOSEC [Concomitant]
  5. MAGNESIUM SULFATE [Concomitant]
  6. LASIX [Concomitant]
  7. LOPID [Concomitant]
  8. ZAROXOLYN [Concomitant]
  9. BACTRIM [Concomitant]
  10. NYSTATIN [Concomitant]
  11. CALCIUM [Concomitant]
  12. ZOVIRAX [Concomitant]
  13. PAXIL [Concomitant]

REACTIONS (5)
  - CYTOMEGALOVIRUS INFECTION [None]
  - DIZZINESS [None]
  - FUNGAL INFECTION [None]
  - GASTROINTESTINAL DISORDER [None]
  - RENAL FAILURE ACUTE [None]
